FAERS Safety Report 5809067-7 (Version None)
Quarter: 2008Q3

REPORT INFORMATION
  Report Type: 
  Country: None (occurrence: None)
  Receive Date: 20080711
  Receipt Date: 20080711
  Transmission Date: 20090109
  Serious: Yes (Other)
  Sender: FDA-Public Use
  Company Number: None

PATIENT
  Age: 16 Year
  Sex: Male
  Weight: 95.709 kg

DRUGS (1)
  1. NEXIUM [Suspect]
     Dosage: 40 MG DAILY PO
     Route: 048

REACTIONS (1)
  - DIARRHOEA [None]
